FAERS Safety Report 6101745-8 (Version None)
Quarter: 2009Q1

REPORT INFORMATION
  Report Type: 
  Country: None (occurrence: None)
  Receive Date: 20090304
  Receipt Date: 20090226
  Transmission Date: 20090719
  Serious: Yes (Other)
  Sender: FDA-Public Use
  Company Number: B0559794A

PATIENT
  Age: 8 Year
  Sex: Female
  Weight: 24 kg

DRUGS (5)
  1. RELENZA [Suspect]
     Indication: INFLUENZA
     Dosage: 10MG TWICE PER DAY
     Route: 055
     Dates: start: 20090212
  2. CHINESE MEDICINE [Concomitant]
     Indication: INFLUENZA
     Dosage: 3.75G PER DAY
     Route: 048
     Dates: start: 20090212, end: 20090213
  3. VENTOLIN [Concomitant]
     Indication: INFLUENZA
     Route: 048
     Dates: start: 20090212
  4. BIOFERMIN [Concomitant]
     Indication: INFLUENZA
     Route: 048
     Dates: start: 20090212
  5. DASEN [Concomitant]
     Indication: INFLUENZA
     Route: 048
     Dates: start: 20090212

REACTIONS (10)
  - AGITATION [None]
  - DIZZINESS [None]
  - FEAR [None]
  - HALLUCINATION, AUDITORY [None]
  - ILLUSION [None]
  - NIGHTMARE [None]
  - NYSTAGMUS [None]
  - SOMNOLENCE [None]
  - TREMOR [None]
  - VOMITING [None]
